FAERS Safety Report 21684142 (Version 1)
Quarter: 2022Q4

REPORT INFORMATION
  Report Type: Spontaneous
  Country: US (occurrence: None)
  Receive Date: 20221202
  Receipt Date: 20221202
  Transmission Date: 20230113
  Serious: No
  Sender: FDA-Public Use
  Company Number: None

PATIENT
  Sex: Male

DRUGS (1)
  1. OTEZLA [Suspect]
     Active Substance: APREMILAST
     Indication: Psoriasis
     Dosage: 30MG 2 TIMES A DAY ORAL
     Route: 048
     Dates: start: 20220616

REACTIONS (5)
  - Drug ineffective [None]
  - Pruritus [None]
  - Burning sensation [None]
  - Pain [None]
  - Sensitivity to weather change [None]
